FAERS Safety Report 6465844-3 (Version None)
Quarter: 2009Q4

REPORT INFORMATION
  Report Type: 
  Country: None (occurrence: None)
  Receive Date: 20091127
  Receipt Date: 20091113
  Transmission Date: 20100525
  Serious: Yes (Other)
  Sender: FDA-Public Use
  Company Number: AVE_01220_2009

PATIENT
  Sex: Female
  Weight: 81.6475 kg

DRUGS (4)
  1. CLONIDINE [Suspect]
     Indication: HYPERTENSION
     Dosage: 0.3 MG QD, VIA A 1/WEEKLY PATCH TRANSDERMAL
     Route: 062
     Dates: start: 20091110, end: 20091111
  2. EXFORGE [Concomitant]
  3. JANUMET [Concomitant]
  4. CATAPRES [Concomitant]

REACTIONS (3)
  - APPLICATION SITE BURN [None]
  - BURNS THIRD DEGREE [None]
  - PRODUCT QUALITY ISSUE [None]
